FAERS Safety Report 5316059-3 (Version None)
Quarter: 2007Q2

REPORT INFORMATION
  Report Type: 
  Country: None (occurrence: None)
  Receive Date: 20070503
  Receipt Date: 20070424
  Transmission Date: 20071010
  Serious: Yes (Hospitalization, Other)
  Sender: FDA-Public Use
  Company Number: US-ELI_LILLY_AND_COMPANY-US200704005371

PATIENT
  Age: 65 Year
  Sex: Male

DRUGS (5)
  1. HUMULIN R [Suspect]
     Indication: DIABETES MELLITUS
     Dosage: UNK, UNK
  2. HUMALOG [Suspect]
     Indication: DIABETES MELLITUS
     Dosage: UNK, UNK
     Dates: start: 20050101
  3. HUMULIN N [Suspect]
     Indication: DIABETES MELLITUS
     Dosage: UNK, UNK
  4. LENTE ILETIN INSULIN [Suspect]
     Dosage: UNK, UNK
  5. METHOTREXATE [Concomitant]

REACTIONS (22)
  - BACK PAIN [None]
  - BLOOD GLUCOSE INCREASED [None]
  - BURNING SENSATION [None]
  - CATARACT [None]
  - DYSPNOEA [None]
  - GAIT DISTURBANCE [None]
  - HYPOTHALAMO-PITUITARY DISORDER [None]
  - LOSS OF CONSCIOUSNESS [None]
  - MYOCARDIAL INFARCTION [None]
  - NERVE INJURY [None]
  - OSTEOMYELITIS [None]
  - OSTEONECROSIS [None]
  - PAIN [None]
  - PAIN IN EXTREMITY [None]
  - PNEUMONIA [None]
  - PSORIASIS [None]
  - RHEUMATOID ARTHRITIS [None]
  - SJOGREN'S SYNDROME [None]
  - SKIN DISCOLOURATION [None]
  - STREPTOCOCCAL INFECTION [None]
  - THYROID DISORDER [None]
  - WRONG DRUG ADMINISTERED [None]
